FAERS Safety Report 13753911 (Version 3)
Quarter: 2017Q3

REPORT INFORMATION
  Report Type: Spontaneous
  Country: JP (occurrence: JP)
  Receive Date: 20170714
  Receipt Date: 20170816
  Transmission Date: 20171127
  Serious: Yes (Other)
  Sender: FDA-Public Use
  Company Number: JP-SHIRE-JP201714778

PATIENT

DRUGS (2)
  1. ADYNOVATE [Suspect]
     Active Substance: ANTIHEMOPHILIC FACTOR, HUMAN RECOMBINANT
     Indication: FACTOR VIII DEFICIENCY
     Dosage: 3000 IU, 2X A WEEK
     Route: 042
     Dates: start: 20170628
  2. ADYNOVATE [Suspect]
     Active Substance: ANTIHEMOPHILIC FACTOR, HUMAN RECOMBINANT
     Dosage: 4000 IU, 2X A WEEK
     Route: 042

REACTIONS (2)
  - Haemorrhage [Recovered/Resolved]
  - Coagulation factor VIII level decreased [Recovered/Resolved]

NARRATIVE: CASE EVENT DATE: 20170701
